FAERS Safety Report 19912322 (Version 1)
Quarter: 2021Q4

REPORT INFORMATION
  Report Type: Spontaneous
  Country: US (occurrence: US)
  Receive Date: 20211002
  Receipt Date: 20211002
  Transmission Date: 20220303
  Serious: Yes (Hospitalization)
  Sender: FDA-Public Use
  Company Number: None

PATIENT
  Age: 36 Year
  Sex: Male
  Weight: 71.1 kg

DRUGS (7)
  1. CYTARABINE [Suspect]
     Active Substance: CYTARABINE
     Dates: end: 20210815
  2. VINCRISTINE SULFATE [Suspect]
     Active Substance: VINCRISTINE SULFATE
     Dates: end: 20210826
  3. CYCLOPHOSPHAMIDE [Suspect]
     Active Substance: CYCLOPHOSPHAMIDE
     Dates: end: 20210805
  4. DEXAMETHASONE [Suspect]
     Active Substance: DEXAMETHASONE
     Dates: end: 20210616
  5. DOXORUBICIN HYDROCHLORIDE [Suspect]
     Active Substance: DOXORUBICIN HYDROCHLORIDE
     Dates: end: 20210610
  6. METHOTREXATE [Suspect]
     Active Substance: METHOTREXATE
     Dates: end: 20210812
  7. THIOGUANINE ANHYDROUS [Suspect]
     Active Substance: THIOGUANINE ANHYDROUS
     Dates: end: 20210818

REACTIONS (10)
  - Loss of consciousness [None]
  - Vomiting [None]
  - Mental status changes [None]
  - Agitation [None]
  - Aspiration [None]
  - Gallbladder enlargement [None]
  - Hypotension [None]
  - Rhabdomyolysis [None]
  - Pneumonia [None]
  - Pneumothorax [None]

NARRATIVE: CASE EVENT DATE: 20210904
